FAERS Safety Report 25178605 (Version 5)
Quarter: 2025Q4

REPORT INFORMATION
  Report Type: Spontaneous
  Country: JP (occurrence: JP)
  Receive Date: 20250409
  Receipt Date: 20251003
  Transmission Date: 20260118
  Serious: Yes (Death)
  Sender: BIOCRYST PHARMACEUTICALS
  Company Number: JP-BIOCRYST PHARMACEUTICALS, INC.-2025BCR00448

PATIENT

DRUGS (10)
  1. RAPIACTA [Suspect]
     Active Substance: PERAMIVIR
     Indication: Influenza
     Dosage: 150 MG, QD
     Route: 042
     Dates: start: 20250103, end: 20250103
  2. RAPIACTA [Suspect]
     Active Substance: PERAMIVIR
     Dosage: 300 MG, QD
     Route: 042
     Dates: start: 20250104, end: 20250105
  3. SPIRONOLACTONE [Concomitant]
     Active Substance: SPIRONOLACTONE
     Indication: Product used for unknown indication
     Dosage: 25.0 MG, QD
     Route: 048
     Dates: start: 20250103, end: 20250105
  4. FUROSEMIDE [Concomitant]
     Active Substance: FUROSEMIDE
     Indication: Product used for unknown indication
     Dosage: 10 MG, QD
     Route: 048
     Dates: start: 20250103
  5. FUROSEMIDE [Concomitant]
     Active Substance: FUROSEMIDE
     Dosage: 20 MG, QD
     Route: 048
     Dates: end: 20250105
  6. CARVEDILOL [Concomitant]
     Active Substance: CARVEDILOL
     Indication: Product used for unknown indication
     Dosage: 5.0 MG, QD
     Route: 048
     Dates: start: 20250104, end: 20250105
  7. ENTRESTO [Concomitant]
     Active Substance: SACUBITRIL\VALSARTAN
     Indication: Product used for unknown indication
     Dosage: 50.0 MG, QD
     Route: 048
     Dates: start: 20250104, end: 20250105
  8. BISOPROLOL [Concomitant]
     Active Substance: BISOPROLOL
     Indication: Product used for unknown indication
     Dosage: 2.0 MG, QD
     Route: 061
     Dates: start: 20250107, end: 20250110
  9. URSODIOL [Concomitant]
     Active Substance: URSODIOL
     Indication: Product used for unknown indication
     Dosage: 300.0 MG, Q8HR
     Route: 048
     Dates: start: 20250108, end: 20250108
  10. UNSPECIFIED INGREDIENT [Concomitant]
     Active Substance: UNSPECIFIED INGREDIENT
     Indication: Product used for unknown indication
     Dosage: UNK
     Route: 065
     Dates: start: 20250108

REACTIONS (7)
  - Cardiac failure [Fatal]
  - Encephalopathy [Fatal]
  - Liver disorder [Fatal]
  - Renal disorder [Fatal]
  - Multiple organ dysfunction syndrome [Fatal]
  - Prescribed overdose [Recovered/Resolved]
  - Off label use [Recovered/Resolved]

NARRATIVE: CASE EVENT DATE: 20250103
